FAERS Safety Report 12875998 (Version 1)
Quarter: 2016Q4

REPORT INFORMATION
  Report Type: Spontaneous
  Country: US (occurrence: US)
  Receive Date: 20161024
  Receipt Date: 20161024
  Transmission Date: 20170207
  Serious: No
  Sender: FDA-Public Use
  Company Number: US-JAZZ-2016-US-015101

PATIENT
  Sex: Female

DRUGS (39)
  1. XYREM [Suspect]
     Active Substance: SODIUM OXYBATE
     Indication: NARCOLEPSY
     Dosage: 2.25 G, BID
     Route: 048
     Dates: start: 200709, end: 200711
  2. XYREM [Suspect]
     Active Substance: SODIUM OXYBATE
     Indication: CATAPLEXY
     Dosage: DOSE ADJUSTMENTS
     Route: 048
     Dates: start: 200711, end: 200910
  3. BENADRYL ALLERGY [Concomitant]
     Active Substance: DIPHENHYDRAMINE HYDROCHLORIDE
  4. ALLERGY [Concomitant]
     Active Substance: UNSPECIFIED INGREDIENT
  5. XYREM [Suspect]
     Active Substance: SODIUM OXYBATE
     Dosage: 4 G, BID
     Route: 048
     Dates: start: 201311, end: 201405
  6. XYREM [Suspect]
     Active Substance: SODIUM OXYBATE
     Dosage: 4.5 G, BID
     Route: 048
     Dates: start: 201405
  7. HYDROCHLOROTHIAZIDE. [Concomitant]
     Active Substance: HYDROCHLOROTHIAZIDE
  8. IBUPROFEN. [Concomitant]
     Active Substance: IBUPROFEN
  9. RANITIDINE. [Concomitant]
     Active Substance: RANITIDINE
  10. MELOXICAM. [Concomitant]
     Active Substance: MELOXICAM
  11. MAGNESIUM [Concomitant]
     Active Substance: MAGNESIUM
  12. PROPRANOLOL [Concomitant]
     Active Substance: PROPRANOLOL\PROPRANOLOL HYDROCHLORIDE
  13. PROVIGIL [Concomitant]
     Active Substance: MODAFINIL
  14. REMERON [Concomitant]
     Active Substance: MIRTAZAPINE
  15. SPIRONOLACTONE. [Concomitant]
     Active Substance: SPIRONOLACTONE
  16. EFFEXOR [Concomitant]
     Active Substance: VENLAFAXINE HYDROCHLORIDE
  17. CYCLOBENZAPRINE [Concomitant]
     Active Substance: CYCLOBENZAPRINE
  18. CALCIUM [Concomitant]
     Active Substance: CALCIUM
  19. DYNACIN [Concomitant]
     Active Substance: MINOCYCLINE HYDROCHLORIDE
  20. ROBAXIN [Concomitant]
     Active Substance: METHOCARBAMOL
  21. ACANYA [Concomitant]
     Active Substance: BENZOYL PEROXIDE\CLINDAMYCIN PHOSPHATE
  22. LAMICTAL [Concomitant]
     Active Substance: LAMOTRIGINE
  23. LEXAPRO [Concomitant]
     Active Substance: ESCITALOPRAM OXALATE
  24. RISPERDAL [Concomitant]
     Active Substance: RISPERIDONE
  25. XYREM [Suspect]
     Active Substance: SODIUM OXYBATE
     Dosage: 4.5 G, BID
     Route: 048
     Dates: start: 200910, end: 2010
  26. KLOR-CON [Concomitant]
     Active Substance: POTASSIUM CHLORIDE
  27. AMBIEN CR [Concomitant]
     Active Substance: ZOLPIDEM TARTRATE
  28. GABAPENTIN. [Concomitant]
     Active Substance: GABAPENTIN
  29. XYREM [Suspect]
     Active Substance: SODIUM OXYBATE
     Dosage: 3 G, BID
     Route: 048
     Dates: start: 201310, end: 201311
  30. CEFADROXIL. [Concomitant]
     Active Substance: CEFADROXIL
  31. DIFFERIN [Concomitant]
     Active Substance: ADAPALENE
  32. XANAX [Concomitant]
     Active Substance: ALPRAZOLAM
  33. ZALEPLON. [Concomitant]
     Active Substance: ZALEPLON
  34. TRAZODONE HYDROCHLORIDE. [Concomitant]
     Active Substance: TRAZODONE HYDROCHLORIDE
  35. BACLOFEN. [Concomitant]
     Active Substance: BACLOFEN
  36. DOXEPIN [Concomitant]
     Active Substance: DOXEPIN
  37. HALCION [Concomitant]
     Active Substance: TRIAZOLAM
  38. MELATONIN [Concomitant]
     Active Substance: MELATONIN
  39. RETIN-A [Concomitant]
     Active Substance: TRETINOIN

REACTIONS (1)
  - Hypernatraemia [Unknown]
